FAERS Safety Report 18853557 (Version 3)
Quarter: 2022Q4

REPORT INFORMATION
  Report Type: Spontaneous
  Country: BR (occurrence: BR)
  Receive Date: 20210205
  Receipt Date: 20221227
  Transmission Date: 20230112
  Serious: Yes (Hospitalization, Other)
  Sender: FDA-Public Use
  Company Number: BR-JNJFOC-20210147060

PATIENT
  Age: 68 Year
  Sex: Female
  Weight: 93.3 kg

DRUGS (5)
  1. IMBRUVICA [Suspect]
     Active Substance: IBRUTINIB
     Indication: Chronic lymphocytic leukaemia
     Route: 048
     Dates: start: 201809
  2. IMBRUVICA [Suspect]
     Active Substance: IBRUTINIB
     Indication: Chronic lymphocytic leukaemia
     Route: 048
     Dates: start: 201809
  3. PURAN [Concomitant]
     Active Substance: LEVOTHYROXINE SODIUM
     Indication: Product used for unknown indication
     Route: 065
  4. LOSARTAN POTASSIUM [Concomitant]
     Active Substance: LOSARTAN POTASSIUM
     Indication: Product used for unknown indication
     Route: 065
  5. METOPROLOL SUCCINATE [Concomitant]
     Active Substance: METOPROLOL SUCCINATE
     Indication: Product used for unknown indication
     Route: 065

REACTIONS (23)
  - Broncholithiasis [Not Recovered/Not Resolved]
  - Weight increased [Unknown]
  - Suspected counterfeit product [Not Recovered/Not Resolved]
  - Spinal disorder [Not Recovered/Not Resolved]
  - Asthma [Not Recovered/Not Resolved]
  - Wound [Unknown]
  - Iron overload [Unknown]
  - Pruritus [Unknown]
  - Decreased appetite [Unknown]
  - Skin discolouration [Unknown]
  - Discouragement [Unknown]
  - Pulmonary embolism [Unknown]
  - Fatigue [Unknown]
  - Cardiac failure [Unknown]
  - Fatigue [Unknown]
  - Scar [Unknown]
  - COVID-19 [Recovering/Resolving]
  - Pulmonary thrombosis [Unknown]
  - Depressed mood [Unknown]
  - Haemorrhage [Unknown]
  - Decubitus ulcer [Unknown]
  - Pneumonia [Unknown]
  - Rash macular [Unknown]

NARRATIVE: CASE EVENT DATE: 20190601
